FAERS Safety Report 8400290-4 (Version None)
Quarter: 2012Q2

REPORT INFORMATION
  Report Type: 
  Country: None (occurrence: None)
  Receive Date: 20120531
  Receipt Date: 20120522
  Transmission Date: 20120825
  Serious: Yes (Hospitalization)
  Sender: FDA-Public Use
  Company Number: US-TEVA-339814USA

PATIENT
  Sex: Male
  Weight: 101.11 kg

DRUGS (5)
  1. GEMTUZUMAB OZOGAMICIN [Suspect]
     Indication: ACUTE PROMYELOCYTIC LEUKAEMIA
     Dosage: OVER 2HRS DAY 1 ONLY
     Route: 042
     Dates: start: 20120424, end: 20120424
  2. CARVEDILOL [Concomitant]
     Indication: HYPERTENSION
     Dates: start: 20090101, end: 20120428
  3. PRAVASTATIN [Concomitant]
     Indication: HYPERLIPIDAEMIA
     Dates: start: 20090101, end: 20120428
  4. TRETINOIN [Suspect]
     Indication: ACUTE PROMYELOCYTIC LEUKAEMIA
     Dosage: 45 MG/M2;
     Route: 048
     Dates: start: 20120421, end: 20120427
  5. OMEPRAZOLE [Concomitant]
     Indication: GASTROOESOPHAGEAL REFLUX DISEASE
     Dates: start: 20090101, end: 20120428

REACTIONS (5)
  - NEUTROPHIL COUNT DECREASED [None]
  - LEUKOCYTOSIS [None]
  - PLATELET COUNT DECREASED [None]
  - SEPSIS [None]
  - ANAEMIA [None]
